FAERS Safety Report 5757633-X (Version None)
Quarter: 2008Q2

REPORT INFORMATION
  Report Type: 
  Country: None (occurrence: None)
  Receive Date: 20080603
  Receipt Date: 20080523
  Transmission Date: 20081010
  Serious: Yes (Other)
  Sender: FDA-Public Use
  Company Number: FR-PFIZER INC-2008044683

PATIENT
  Sex: Female

DRUGS (2)
  1. VFEND [Suspect]
     Indication: ASPERGILLOSIS
     Dates: start: 20070201, end: 20070201
  2. DRUG, UNSPECIFIED [Concomitant]

REACTIONS (1)
  - BRAIN OEDEMA [None]
